FAERS Safety Report 8045844-2 (Version None)
Quarter: 2012Q1

REPORT INFORMATION
  Report Type: 
  Country: None (occurrence: None)
  Receive Date: 20120113
  Receipt Date: 20120105
  Transmission Date: 20120608
  Serious: Yes (Hospitalization)
  Sender: FDA-Public Use
  Company Number: CHPA2012US000610

PATIENT
  Age: 30 Year
  Sex: Female

DRUGS (3)
  1. TRIAMINIC THIN STRIPS COLD WITH STUFF NOSE [Suspect]
     Indication: NASOPHARYNGITIS
     Dosage: 2 DF, ONCE/SINGLE
     Route: 048
     Dates: start: 20111129, end: 20111129
  2. PROBIOTICS NOS [Concomitant]
  3. DRUG THERAPY NOS [Concomitant]

REACTIONS (3)
  - APHASIA [None]
  - HEMIPLEGIA [None]
  - EXPIRED DRUG ADMINISTERED [None]
